FAERS Safety Report 21111074 (Version 1)
Quarter: 2022Q3

REPORT INFORMATION
  Report Type: Spontaneous
  Country: ES (occurrence: None)
  Receive Date: 20220720
  Receipt Date: 20220720
  Transmission Date: 20221026
  Serious: No
  Sender: FDA-Public Use
  Company Number: None

PATIENT
  Age: 40 Year
  Sex: Male
  Weight: 79 kg

DRUGS (1)
  1. LEVOFLOXACIN [Suspect]
     Active Substance: LEVOFLOXACIN
     Indication: Mycoplasma test positive
     Dosage: OTHER QUANTITY : 1 CAPSULE(S)?
     Route: 048
     Dates: start: 20220713, end: 20220721

REACTIONS (10)
  - Confusional state [None]
  - Muscular weakness [None]
  - Headache [None]
  - Nausea [None]
  - Tendonitis [None]
  - Heart rate increased [None]
  - Tinnitus [None]
  - Neck pain [None]
  - Diplopia [None]
  - Fatigue [None]

NARRATIVE: CASE EVENT DATE: 20220720
